FAERS Safety Report 11593284 (Version 3)
Quarter: 2015Q4

REPORT INFORMATION
  Report Type: Spontaneous
  Country: GB (occurrence: GB)
  Receive Date: 20151005
  Receipt Date: 20151124
  Transmission Date: 20160304
  Serious: Yes (Hospitalization)
  Sender: FDA-Public Use
  Company Number: GB-JNJFOC-20141117840

PATIENT
  Sex: Female

DRUGS (2)
  1. SIMPONI [Suspect]
     Active Substance: GOLIMUMAB
     Indication: ARTHRITIS
     Route: 058
     Dates: end: 201509
  2. SIMPONI [Suspect]
     Active Substance: GOLIMUMAB
     Indication: COLITIS
     Route: 058
     Dates: end: 201509

REACTIONS (5)
  - Colostomy [Recovering/Resolving]
  - Drug ineffective [Unknown]
  - Incorrect product storage [Unknown]
  - Arthritis [Unknown]
  - Ileostomy [Recovering/Resolving]

NARRATIVE: CASE EVENT DATE: 2014
